FAERS Safety Report 11849549 (Version 1)
Quarter: 2015Q4

REPORT INFORMATION
  Report Type: Spontaneous
  Country: US (occurrence: None)
  Receive Date: 20151217
  Receipt Date: 20151217
  Transmission Date: 20160305
  Serious: Yes (Hospitalization)
  Sender: FDA-Public Use
  Company Number: None

PATIENT
  Age: 59 Year
  Sex: Female
  Weight: 61.24 kg

DRUGS (10)
  1. DIVIGEL [Concomitant]
     Active Substance: ESTRADIOL
  2. LUNESTA [Concomitant]
     Active Substance: ESZOPICLONE
  3. BRINTELLIX [Concomitant]
     Active Substance: VORTIOXETINE HYDROBROMIDE
  4. CRESTOR [Concomitant]
     Active Substance: ROSUVASTATIN CALCIUM
  5. AMITRIPTYLINE [Concomitant]
     Active Substance: AMITRIPTYLINE
  6. INVOKANA [Suspect]
     Active Substance: CANAGLIFLOZIN
     Indication: TYPE 1 DIABETES MELLITUS
     Dosage: 300MG  1 PILL AM  ONCE DAILY TAKEN BY MOUTH
     Route: 048
  7. ASPRIN 81MG [Concomitant]
  8. INVOKANA [Suspect]
     Active Substance: CANAGLIFLOZIN
     Indication: GLYCOSYLATED HAEMOGLOBIN INCREASED
     Dosage: 300MG  1 PILL AM  ONCE DAILY TAKEN BY MOUTH
     Route: 048
  9. MEDTRONIC INSULIN PUMP [Concomitant]
  10. NOVALOG [Concomitant]

REACTIONS (1)
  - Diabetic ketoacidosis [None]

NARRATIVE: CASE EVENT DATE: 20151206
